FAERS Safety Report 5040711-0 (Version None)
Quarter: 2006Q3

REPORT INFORMATION
  Report Type: 
  Country: None (occurrence: None)
  Receive Date: 20060702
  Receipt Date: 20060524
  Transmission Date: 20061208
  Serious: Yes (Hospitalization, Other)
  Sender: FDA-Public Use
  Company Number: BR-ABBOTT-06P-020-0334296-00

PATIENT
  Age: 40 Year
  Sex: Female
  Weight: 40 kg

DRUGS (2)
  1. HUMIRA [Suspect]
     Indication: RHEUMATOID ARTHRITIS
     Route: 058
     Dates: start: 20060501, end: 20060501
  2. NSAID'S [Concomitant]
     Indication: RHEUMATOID ARTHRITIS

REACTIONS (7)
  - INFLUENZA [None]
  - INVESTIGATION ABNORMAL [None]
  - LUNG NEOPLASM [None]
  - PAIN [None]
  - PLEURAL EFFUSION [None]
  - PNEUMONIA [None]
  - PULMONARY OEDEMA [None]
